FAERS Safety Report 19170330 (Version 1)
Quarter: 2021Q2

REPORT INFORMATION
  Report Type: Spontaneous
  Country: US (occurrence: US)
  Receive Date: 20210422
  Receipt Date: 20210422
  Transmission Date: 20210717
  Serious: No
  Sender: FDA-Public Use
  Company Number: US-PFIZER INC-2021325490

PATIENT
  Age: 43 Year
  Sex: Female
  Weight: 60.78 kg

DRUGS (2)
  1. XELJANZ XR [Suspect]
     Active Substance: TOFACITINIB CITRATE
     Indication: RHEUMATOID ARTHRITIS
     Dosage: 11 MG, DAILY
  2. XELJANZ [Suspect]
     Active Substance: TOFACITINIB CITRATE
     Indication: RHEUMATOID ARTHRITIS
     Dosage: 10 MG

REACTIONS (13)
  - Insomnia [Unknown]
  - Abdominal discomfort [Unknown]
  - Dry eye [Unknown]
  - Feeling abnormal [Unknown]
  - Sleep disorder [Unknown]
  - Flushing [Unknown]
  - Wheezing [Unknown]
  - Feeling hot [Unknown]
  - Appetite disorder [Unknown]
  - Drug ineffective [Unknown]
  - Respiratory disorder [Unknown]
  - Headache [Unknown]
  - Throat irritation [Unknown]

NARRATIVE: CASE EVENT DATE: 202102
